FAERS Safety Report 5198847-X (Version None)
Quarter: 2006Q4

REPORT INFORMATION
  Report Type: 
  Country: None (occurrence: None)
  Receive Date: 20060925
  Receipt Date: 20060622
  Transmission Date: 20070319
  Serious: Yes (Other)
  Sender: FDA-Public Use
  Company Number: PHEH2006US07117

PATIENT
  Age: 5 Year
  Sex: Female
  Weight: 21.9 kg

DRUGS (1)
  1. FOCALIN XR [Suspect]

REACTIONS (2)
  - HALLUCINATION [None]
  - SLEEP DISORDER [None]
